FAERS Safety Report 10892696 (Version 3)
Quarter: 2017Q2

REPORT INFORMATION
  Report Type: Report from Study
  Country: US (occurrence: US)
  Receive Date: 20150306
  Receipt Date: 20170512
  Transmission Date: 20170829
  Serious: Yes (Hospitalization, Other)
  Sender: FDA-Public Use
  Company Number: US-009507513-1503USA001827

PATIENT
  Age: 67 Year
  Sex: Male
  Weight: 77.98 kg

DRUGS (10)
  1. TEMODAR [Suspect]
     Active Substance: TEMOZOLOMIDE
     Dosage: 200 MG/M2. DAY 1-5 OF EACH 28 DAY CYCLE.
     Route: 048
     Dates: start: 20141119
  2. ABT-414 [Suspect]
     Active Substance: INVESTIGATIONAL PRODUCT
     Indication: GLIOBLASTOMA MULTIFORME
     Dosage: 1.25 MG/KG ON DAY 1 AND 15 OF EACH 28 DAY CYCLE(150MG/M2, 1 IN 1 DAY)
     Route: 042
     Dates: start: 20141023, end: 20141231
  3. ZOFRAN [Concomitant]
     Active Substance: ONDANSETRON HYDROCHLORIDE
     Indication: NAUSEA
     Dosage: EVERY MORNING PRIOR TO TEMODAR AND EVRY 8 HOURS AS NEEDED
     Route: 048
     Dates: start: 20141022
  4. ABT-414 [Suspect]
     Active Substance: INVESTIGATIONAL PRODUCT
     Dosage: 0.5 MG/KG ON DAY 1 AND 15 OF EACH 28 DAY CYCLE(150MG/M2, 1 IN 1 DAY)
     Route: 042
     Dates: start: 20150211
  5. LEVETIRACETAM. [Concomitant]
     Active Substance: LEVETIRACETAM
     Indication: SEIZURE
     Dosage: 500 MG, QD
     Route: 048
     Dates: start: 20141008, end: 20150211
  6. CITALOPRAM [Concomitant]
     Active Substance: CITALOPRAM HYDROBROMIDE
     Indication: DEPRESSION
     Dosage: 20 MG, QD
     Route: 048
     Dates: start: 20141008
  7. ATORVASTATIN [Concomitant]
     Active Substance: ATORVASTATIN
     Indication: BLOOD CHOLESTEROL INCREASED
     Dosage: 10 MG, HS
     Route: 048
     Dates: start: 20141008
  8. TEMODAR [Suspect]
     Active Substance: TEMOZOLOMIDE
     Indication: GLIOBLASTOMA MULTIFORME
     Dosage: 150 MG/M2. DAY 1-5 OF EACH 28 DAY CYCLE
     Route: 048
     Dates: start: 20141022, end: 20141026
  9. DEXAMETHASONE. [Concomitant]
     Active Substance: DEXAMETHASONE
     Indication: PROPHYLAXIS
     Dosage: 2 GTT, TID (BOTH EYES)
     Route: 047
     Dates: start: 20141020, end: 20150408
  10. LACRI LUBE (LANOLIN ALCOHOLS (+) MINERAL OIL (+) PETROLATUM, WHITE) [Concomitant]
     Indication: VISION BLURRED
     Dosage: 1 GTT, QD
     Route: 047
     Dates: start: 20141125

REACTIONS (1)
  - Seizure [Recovered/Resolved]

NARRATIVE: CASE EVENT DATE: 20150118
